FAERS Safety Report 26127434 (Version 1)
Quarter: 2025Q4

REPORT INFORMATION
  Report Type: Spontaneous
  Country: CN (occurrence: CN)
  Receive Date: 20251205
  Receipt Date: 20251205
  Transmission Date: 20260118
  Serious: Yes (Hospitalization)
  Sender: NOVO NORDISK
  Company Number: None

PATIENT
  Age: 37 Year
  Sex: Male

DRUGS (2)
  1. VICTOZA [Suspect]
     Active Substance: LIRAGLUTIDE
     Indication: Obesity
  2. VICTOZA [Suspect]
     Active Substance: LIRAGLUTIDE
     Indication: Type 2 diabetes mellitus
     Dosage: 0.6 MG, QD
     Route: 058
     Dates: start: 20251005, end: 20251018

REACTIONS (2)
  - Abdominal pain [Recovering/Resolving]
  - Gastritis [Recovering/Resolving]

NARRATIVE: CASE EVENT DATE: 20251013
